FAERS Safety Report 4369179-4 (Version None)
Quarter: 2004Q2

REPORT INFORMATION
  Report Type: 
  Country: None (occurrence: None)
  Receive Date: 20040528
  Receipt Date: 20040518
  Transmission Date: 20050107
  Serious: Yes (Hospitalization)
  Sender: FDA-Public Use
  Company Number: KR-JNJFOC-20040504235

PATIENT
  Age: 32 Year
  Sex: Female
  Weight: 68 kg

DRUGS (2)
  1. SPORANOX [Suspect]
     Indication: ONYCHOMYCOSIS
     Dosage: 200 MG, 2 IN 1 DAY, ORAL
     Route: 048
     Dates: start: 20031105, end: 20040317
  2. MOTILIUM-M (TABLETS) DOMPERIDONE [Concomitant]

REACTIONS (6)
  - BLOOD BILIRUBIN INCREASED [None]
  - FATIGUE [None]
  - HAEMOLYTIC ANAEMIA [None]
  - JAUNDICE [None]
  - LIVER DISORDER [None]
  - NAUSEA [None]
